FAERS Safety Report 7906881-9 (Version None)
Quarter: 2011Q4

REPORT INFORMATION
  Report Type: 
  Country: None (occurrence: None)
  Receive Date: 20111110
  Receipt Date: 20111104
  Transmission Date: 20120403
  Serious: Yes (Hospitalization)
  Sender: FDA-Public Use
  Company Number: TW-BAYER-2011-104268

PATIENT
  Age: 81 Year
  Sex: Male
  Weight: 62 kg

DRUGS (33)
  1. MOSAPRIDE [Concomitant]
     Indication: DECREASED APPETITE
     Dosage: 5 MG, TID
     Dates: start: 20110131, end: 20110904
  2. FUROSEMIDE [Concomitant]
     Indication: OEDEMA PERIPHERAL
     Dosage: 20 MG, QD
     Dates: start: 20110131, end: 20110420
  3. FUROSEMIDE [Concomitant]
     Dosage: 10 MG, STAT
     Dates: start: 20110424, end: 20110424
  4. SPIRONOLACTONE [Concomitant]
     Indication: OEDEMA PERIPHERAL
     Dosage: 50 MG, QOD
     Dates: start: 20110131, end: 20110420
  5. ACARBOSE [Concomitant]
     Indication: DIABETES MELLITUS
     Dosage: 50 MG, TID
     Dates: start: 20110131, end: 20110424
  6. AMANTADINE HCL [Concomitant]
     Indication: PARKINSONISM
     Dosage: 50 MG, BID
     Dates: start: 20070404, end: 20110515
  7. RANITIDINE [Concomitant]
     Indication: GASTROOESOPHAGEAL REFLUX DISEASE
     Dosage: 150 MG, QD
     Dates: start: 20110421
  8. LACTULOSE [Concomitant]
  9. LEVOTHYROXINE SODIUM [Suspect]
     Indication: HYPOTHYROIDISM
     Dosage: 25 MG, QD
     Dates: start: 20110725
  10. SORAFENIB (RAF KINASE INHIBITOR) [Suspect]
     Indication: HEPATIC NEOPLASM MALIGNANT
     Dosage: 400 MG, BID
     Route: 048
     Dates: start: 20110411, end: 20110922
  11. GLYBURIDE [Concomitant]
     Dosage: 5 MG, QD
     Dates: start: 20110502, end: 20110522
  12. FUROSEMIDE [Concomitant]
     Dosage: 20 MG, QOD
     Dates: start: 20110502, end: 20110926
  13. DEXTROSE [Concomitant]
     Indication: HYPOGLYCAEMIA
     Dosage: 80 ML, STAT
     Dates: start: 20110429, end: 20110429
  14. LOPERAMIDE HCL [Concomitant]
     Dosage: 2 MG, BID
     Dates: start: 20110905, end: 20110927
  15. DIPYRIDAMOLE [Concomitant]
     Indication: ISCHAEMIC STROKE
     Dosage: 75 MG, HS
     Dates: start: 20110421
  16. LACTULOSE [Concomitant]
     Dosage: 30 ML, TID
     Dates: start: 20110430, end: 20110430
  17. FUROSEMIDE [Concomitant]
  18. SPIRONOLACTONE [Concomitant]
  19. MADOPAR [Concomitant]
     Indication: PARKINSONISM
     Dosage: 125 MG, BID
     Dates: start: 20070404, end: 20110515
  20. BUTYLSCOPOLAMIN [Concomitant]
     Indication: DIARRHOEA
     Dosage: 20 MG, STAT
     Dates: start: 20110810, end: 20110810
  21. GLYBURIDE [Concomitant]
     Indication: DIABETES MELLITUS
     Dosage: 5 MG, BID
     Dates: start: 20110131, end: 20110424
  22. GLYBURIDE [Concomitant]
     Dosage: 2.5 MG, BID
     Dates: start: 20110425, end: 20110501
  23. SENNOSIDE A+B [Concomitant]
     Indication: CONSTIPATION
     Dosage: 40 MG, HS
     Dates: start: 20110131, end: 20110522
  24. ACARBOSE [Concomitant]
     Dosage: 50 MG, TID
     Dates: start: 20110502, end: 20110904
  25. DEXTROSE [Concomitant]
     Dosage: 40 ML, STAT
     Dates: start: 20110430, end: 20110430
  26. LINIFANIB [Suspect]
     Indication: HEPATIC NEOPLASM MALIGNANT
  27. CETIRIZINE HCL [Concomitant]
     Indication: PRURITUS
     Dosage: 10 MG, QD
     Dates: start: 20100201, end: 20110427
  28. DIOCTAHEDRAL SMECTITE [Concomitant]
     Indication: DIARRHOEA
     Dosage: 3 G, UNK
     Dates: start: 20110810, end: 20110812
  29. LOPERAMIDE HCL [Concomitant]
     Indication: DIARRHOEA
     Dosage: 2 MG, QD
     Dates: start: 20110815, end: 20110829
  30. TAMSULOSIN HCL [Concomitant]
     Indication: BENIGN PROSTATIC HYPERPLASIA
     Dosage: 0.2 MG, HS
     Dates: start: 20110131
  31. SPIRONOLACTONE [Concomitant]
     Dosage: 50 MG, QOD
     Dates: start: 20110502
  32. CETIRIZINE HCL [Concomitant]
     Dosage: 10 ML, QD
     Dates: start: 20110502
  33. LACTULOSE [Concomitant]
     Indication: HEPATIC ENCEPHALOPATHY PROPHYLAXIS
     Dosage: 15 ML, STAT
     Dates: start: 20110422, end: 20110422

REACTIONS (2)
  - ASCITES [None]
  - HEPATIC FAILURE [None]
